FAERS Safety Report 9678751 (Version 3)
Quarter: 2013Q4

REPORT INFORMATION
  Report Type: Report from Study
  Country: US (occurrence: US)
  Receive Date: 20131108
  Receipt Date: 20131119
  Transmission Date: 20140711
  Serious: Yes (Other)
  Sender: FDA-Public Use
  Company Number: US-PFIZER INC-US-WYE-H18305110

PATIENT
  Age: 42 Year
  Sex: Male
  Weight: 121 kg

DRUGS (14)
  1. RAMIPRIL [Suspect]
     Indication: PROTEINURIA
     Dosage: 5 MG, 1X/DAY
     Route: 048
     Dates: start: 20090223, end: 20090330
  2. SIROLIMUS [Suspect]
     Indication: PROPHYLAXIS AGAINST TRANSPLANT REJECTION
     Dosage: 2 MG, 1X/DAY
     Route: 048
     Dates: start: 20090320, end: 20090330
  3. MYCOPHENOLATE MOFETIL [Suspect]
     Indication: IMMUNOSUPPRESSION
     Dosage: 1000 MG, 2X/DAY
     Route: 048
     Dates: start: 20081022
  4. TACROLIMUS [Suspect]
     Dosage: 1 MG, 2X/DAY(START DATE UNK); DOSE WAS 1 MG BID; THEN ON 20MAR2009, DOSE DECREASED TO 0.5 MG BID
     Route: 048
  5. ALENDRONATE SODIUM [Concomitant]
     Dosage: UNK
     Route: 048
     Dates: start: 20081208
  6. ATORVASTATIN [Concomitant]
     Dosage: UNK
     Route: 048
     Dates: start: 20070806
  7. CALTRATE 600 +D PLUS [Concomitant]
     Dosage: UNK
     Route: 048
     Dates: start: 20081202
  8. GLIPIZIDE [Concomitant]
     Dosage: UNK
     Route: 048
     Dates: start: 20090209
  9. METOPROLOL [Concomitant]
     Route: 048
  10. B COMPLEX [Concomitant]
     Dosage: UNK
     Route: 048
     Dates: start: 20090311
  11. OMEPRAZOLE [Concomitant]
     Dosage: UNK
     Route: 048
     Dates: start: 20081024
  12. BACTRIM [Concomitant]
     Dosage: UNK
     Route: 048
     Dates: start: 20081023
  13. CIALIS [Concomitant]
     Dosage: UNK
     Route: 048
     Dates: start: 20071002
  14. VALTREX [Concomitant]
     Route: 048

REACTIONS (2)
  - Enterobacter infection [Recovered/Resolved]
  - Mouth ulceration [Recovered/Resolved]
